FAERS Safety Report 15454917 (Version 2)
Quarter: 2018Q4

REPORT INFORMATION
  Report Type: Report from Study
  Country: US (occurrence: US)
  Receive Date: 20181002
  Receipt Date: 20181119
  Transmission Date: 20190204
  Serious: Yes (Hospitalization, Other)
  Sender: FDA-Public Use
  Company Number: US-BRISTOL-MYERS SQUIBB COMPANY-BMS-2018-089701

PATIENT
  Age: 78 Year
  Sex: Male
  Weight: 100.9 kg

DRUGS (2)
  1. IPILIMUMAB [Suspect]
     Active Substance: IPILIMUMAB
     Indication: ADENOID CYSTIC CARCINOMA
     Dosage: 1 MG/KG, Q6WK
     Route: 042
     Dates: start: 20180726
  2. NIVOLUMAB [Suspect]
     Active Substance: NIVOLUMAB
     Indication: ADENOCARCINOMA
     Dosage: 3 MG/KG, Q2WK
     Route: 042
     Dates: start: 20180726

REACTIONS (5)
  - Bone marrow failure [Unknown]
  - Pancytopenia [Unknown]
  - Anaemia [Unknown]
  - Diarrhoea [Unknown]
  - Upper gastrointestinal haemorrhage [Unknown]

NARRATIVE: CASE EVENT DATE: 20180920
